FAERS Safety Report 4667693-5 (Version None)
Quarter: 2005Q2

REPORT INFORMATION
  Report Type: 
  Country: None (occurrence: None)
  Receive Date: 20050520
  Receipt Date: 20050511
  Transmission Date: 20051028
  Serious: Yes (Hospitalization)
  Sender: FDA-Public Use
  Company Number: AU-JNJFOC-20050304273

PATIENT
  Age: 35 Year
  Sex: Male

DRUGS (4)
  1. REMICADE [Suspect]
     Indication: CROHN'S DISEASE
     Route: 042
  2. REMICADE [Suspect]
     Dosage: 2 INFUSIONS
     Route: 042
  3. STEROID NOS [Concomitant]
     Route: 049
  4. IMURAN [Concomitant]

REACTIONS (3)
  - INTESTINAL OBSTRUCTION [None]
  - INTESTINAL STENOSIS [None]
  - INTESTINAL ULCER [None]
